FAERS Safety Report 14370479 (Version 4)
Quarter: 2018Q1

REPORT INFORMATION
  Report Type: Spontaneous
  Country: US (occurrence: US)
  Receive Date: 20180110
  Receipt Date: 20180222
  Transmission Date: 20180509
  Serious: Yes (Hospitalization, Other)
  Sender: FDA-Public Use
  Company Number: US-PFIZER INC-2018004870

PATIENT
  Age: 63 Year
  Sex: Male

DRUGS (17)
  1. ZYPREXA [Concomitant]
     Active Substance: OLANZAPINE
     Dosage: UNK
  2. LASIX [Concomitant]
     Active Substance: FUROSEMIDE
     Indication: LUNG ADENOCARCINOMA
     Dosage: 1 DF, DAILY (40 MG)
     Route: 048
  3. XARELTO [Concomitant]
     Active Substance: RIVAROXABAN
     Indication: LUNG ADENOCARCINOMA
     Dosage: 20 MG, 1X/DAY (EVERY EVENING WITH DINNER)
     Route: 048
  4. TESSALON [Concomitant]
     Active Substance: BENZONATATE
     Dosage: 100 MG, AS NEEDED (3 TIMES A DAY)
     Route: 048
  5. PRAVACHOL [Concomitant]
     Active Substance: PRAVASTATIN SODIUM
     Indication: LIPIDS ABNORMAL
     Dosage: 20 MG, 1X/DAY (EVERY EVENING)
     Route: 048
  6. PROAIR HFA [Concomitant]
     Active Substance: ALBUTEROL SULFATE
     Indication: CHRONIC OBSTRUCTIVE PULMONARY DISEASE
  7. XARELTO [Concomitant]
     Active Substance: RIVAROXABAN
     Indication: PULMONARY EMBOLISM
  8. TYLENOL [Concomitant]
     Active Substance: ACETAMINOPHEN
     Indication: PAIN
     Dosage: 650 MG, AS NEEDED (EVERY 6 HOURS)
     Route: 048
  9. PROTONIX [Concomitant]
     Active Substance: PANTOPRAZOLE SODIUM
     Indication: OESOPHAGITIS
  10. LORTAB [Concomitant]
     Active Substance: ACETAMINOPHEN\HYDROCODONE BITARTRATE
     Dosage: AS NEEDED (HYDROCODONE: 5 MG/ACETAMINOPHEN: 325 MG), (EVERY 6 HOURS)
  11. PROTONIX [Concomitant]
     Active Substance: PANTOPRAZOLE SODIUM
     Indication: GASTROOESOPHAGEAL REFLUX DISEASE
     Dosage: 40 MG, DAILY
     Route: 048
  12. XALKORI [Suspect]
     Active Substance: CRIZOTINIB
     Dosage: 250 MG, 2X/DAY
     Route: 048
     Dates: start: 20170328, end: 20171228
  13. CIALIS [Concomitant]
     Active Substance: TADALAFIL
     Dosage: 10 MG, AS NEEDED (DAILY)
     Route: 048
  14. LASIX [Concomitant]
     Active Substance: FUROSEMIDE
     Indication: OEDEMA
  15. XARELTO [Concomitant]
     Active Substance: RIVAROXABAN
     Indication: VENOUS THROMBOSIS
  16. XALKORI [Suspect]
     Active Substance: CRIZOTINIB
     Indication: LUNG ADENOCARCINOMA STAGE IV
     Dosage: UNK
     Route: 048
     Dates: start: 20170401, end: 20171227
  17. PROAIR HFA [Concomitant]
     Active Substance: ALBUTEROL SULFATE
     Indication: LUNG ADENOCARCINOMA
     Dosage: UNK UNK, AS NEEDED (2 PUFFS BY INHALATION EVERY 6 HOURS)

REACTIONS (16)
  - Pneumonia [Unknown]
  - Respiratory failure [Unknown]
  - Diarrhoea [Unknown]
  - Pneumonitis [Recovering/Resolving]
  - Abdominal discomfort [Unknown]
  - Bronchitis [Not Recovered/Not Resolved]
  - Blood calcium decreased [Unknown]
  - Vomiting [Not Recovered/Not Resolved]
  - Constipation [Unknown]
  - Off label use [Unknown]
  - Sputum discoloured [Not Recovered/Not Resolved]
  - Oedema peripheral [Not Recovered/Not Resolved]
  - Retching [Unknown]
  - Nausea [Not Recovered/Not Resolved]
  - Cough [Not Recovered/Not Resolved]
  - Blood potassium decreased [Unknown]

NARRATIVE: CASE EVENT DATE: 20170403
